FAERS Safety Report 8451389-8 (Version None)
Quarter: 2012Q2

REPORT INFORMATION
  Report Type: 
  Country: None (occurrence: None)
  Receive Date: 20120620
  Receipt Date: 20120227
  Transmission Date: 20120825
  Serious: No
  Sender: FDA-Public Use
  Company Number: US-VERTEX PHARMACEUTICALS INC.-AE-2012-002852

PATIENT
  Sex: Female
  Weight: 67.646 kg

DRUGS (13)
  1. INCIVEK [Suspect]
     Indication: HEPATITIS C
     Route: 048
     Dates: start: 20120129
  2. PROCTOZONE-HC [Concomitant]
  3. RIBAVIRIN [Concomitant]
     Indication: HEPATITIS C
     Dates: start: 20120129, end: 20120223
  4. PROCHLORPERAZINE [Concomitant]
  5. ALPRAZOLAM [Concomitant]
  6. CYMBALTA [Concomitant]
  7. NEXIUM [Concomitant]
  8. ANUCORT HC [Concomitant]
  9. PEGASYS [Concomitant]
     Indication: HEPATITIS C
     Route: 058
     Dates: start: 20120129
  10. ATENOLOL [Concomitant]
  11. ORACEA [Concomitant]
  12. RIBAVIRIN [Concomitant]
     Route: 048
     Dates: start: 20120224
  13. WARFARIN SODIUM [Concomitant]

REACTIONS (5)
  - FATIGUE [None]
  - RASH [None]
  - RECTAL HAEMORRHAGE [None]
  - APHTHOUS STOMATITIS [None]
  - ANORECTAL DISCOMFORT [None]
